FAERS Safety Report 19039867 (Version 1)
Quarter: 2021Q1

REPORT INFORMATION
  Report Type: Report from Study
  Country: NL (occurrence: NL)
  Receive Date: 20210322
  Receipt Date: 20210322
  Transmission Date: 20210420
  Serious: Yes (Death)
  Sender: FDA-Public Use
  Company Number: NL-PFIZER INC-2021291279

PATIENT
  Age: 19 Year
  Sex: Female

DRUGS (1)
  1. CYTARABINE. [Suspect]
     Active Substance: CYTARABINE
     Indication: ACUTE MYELOID LEUKAEMIA
     Dosage: 1000 MG/M2, 2X/DAY FOR 6 DAYS

REACTIONS (6)
  - Gastrointestinal wall thickening [Fatal]
  - Peritonitis [Fatal]
  - Ulcer [Fatal]
  - Intestinal dilatation [Fatal]
  - Necrosis [Fatal]
  - Gastrointestinal oedema [Fatal]
